FAERS Safety Report 6964843-2 (Version None)
Quarter: 2010Q3

REPORT INFORMATION
  Report Type: 
  Country: None (occurrence: None)
  Receive Date: 20100903
  Receipt Date: 20100825
  Transmission Date: 20110219
  Serious: Yes (Hospitalization)
  Sender: FDA-Public Use
  Company Number: US-BRISTOL-MYERS SQUIBB COMPANY-15255276

PATIENT
  Age: 63 Year
  Sex: Male

DRUGS (2)
  1. ONGLYZA [Suspect]
  2. RAMIPRIL [Concomitant]

REACTIONS (1)
  - PANCREATITIS ACUTE [None]
